FAERS Safety Report 23465236 (Version 24)
Quarter: 2025Q2

REPORT INFORMATION
  Report Type: Spontaneous
  Country: CA (occurrence: CA)
  Receive Date: 20240201
  Receipt Date: 20250530
  Transmission Date: 20250717
  Serious: Yes (Other)
  Sender: CELLTRION
  Company Number: CA-CELLTRION INC.-2023CA024247

PATIENT

DRUGS (15)
  1. INFLECTRA [Suspect]
     Active Substance: INFLIXIMAB-DYYB
     Indication: Colitis ulcerative
     Route: 042
     Dates: start: 20231109, end: 20231109
  2. INFLECTRA [Suspect]
     Active Substance: INFLIXIMAB-DYYB
     Route: 042
     Dates: start: 20231123, end: 20231123
  3. INFLECTRA [Suspect]
     Active Substance: INFLIXIMAB-DYYB
     Dosage: 10 MG/KG, AT WEEKS 0, 2, AND 6, THEN EVERY 4 WEEKS (10MG/KG, EVERY 4 WEEK)
     Route: 042
     Dates: start: 20231221, end: 20231221
  4. INFLECTRA [Suspect]
     Active Substance: INFLIXIMAB-DYYB
     Route: 042
     Dates: start: 20240126, end: 20240126
  5. INFLECTRA [Suspect]
     Active Substance: INFLIXIMAB-DYYB
     Dosage: 10 MG/KG, EVERY 4 WEEKS
     Route: 042
     Dates: start: 20240304, end: 20240304
  6. INFLECTRA [Suspect]
     Active Substance: INFLIXIMAB-DYYB
     Route: 042
     Dates: start: 20240527, end: 20240527
  7. INFLECTRA [Suspect]
     Active Substance: INFLIXIMAB-DYYB
     Dosage: 10 MG/KG, EVERY 4 WEEKS
     Route: 042
  8. INFLECTRA [Suspect]
     Active Substance: INFLIXIMAB-DYYB
     Dosage: 10 MG/KG, EVERY 4 WEEKS
     Route: 042
     Dates: start: 20241024
  9. INFLECTRA [Suspect]
     Active Substance: INFLIXIMAB-DYYB
     Dosage: 10 MG/KG, EVERY 4 WEEKS
     Route: 042
     Dates: start: 20241121
  10. INFLECTRA [Suspect]
     Active Substance: INFLIXIMAB-DYYB
     Dosage: 10 MG/KG, EVERY 4 WEEKS
     Route: 042
     Dates: start: 20250115
  11. INFLECTRA [Suspect]
     Active Substance: INFLIXIMAB-DYYB
     Route: 042
     Dates: start: 20250410
  12. MESALAMINE [Concomitant]
     Active Substance: MESALAMINE
  13. PREDNISONE [Concomitant]
     Active Substance: PREDNISONE
     Indication: Colitis ulcerative
     Route: 065
     Dates: start: 202304
  14. PREDNISONE [Concomitant]
     Active Substance: PREDNISONE
     Dates: start: 202309
  15. PREDNISONE [Concomitant]
     Active Substance: PREDNISONE
     Dates: start: 20240623

REACTIONS (20)
  - Condition aggravated [Not Recovered/Not Resolved]
  - Clostridium difficile colitis [Recovered/Resolved]
  - Faecal calprotectin increased [Not Recovered/Not Resolved]
  - Therapy non-responder [Unknown]
  - Drug level above therapeutic [Not Recovered/Not Resolved]
  - Bronchitis [Recovered/Resolved]
  - Root canal infection [Recovering/Resolving]
  - Nasopharyngitis [Not Recovered/Not Resolved]
  - Paranasal sinus discomfort [Not Recovered/Not Resolved]
  - Pain [Not Recovered/Not Resolved]
  - Productive cough [Not Recovered/Not Resolved]
  - Illness [Not Recovered/Not Resolved]
  - Stress at work [Unknown]
  - Insomnia [Unknown]
  - Weight increased [Unknown]
  - Fluid retention [Unknown]
  - Mood swings [Unknown]
  - Sinusitis [Recovered/Resolved]
  - Off label use [Unknown]
  - Off label use [Unknown]

NARRATIVE: CASE EVENT DATE: 20231109
